FAERS Safety Report 10070478 (Version 3)
Quarter: 2014Q2

REPORT INFORMATION
  Report Type: Spontaneous
  Country: DE (occurrence: DE)
  Receive Date: 20140410
  Receipt Date: 20140506
  Transmission Date: 20141212
  Serious: Yes (Other)
  Sender: FDA-Public Use
  Company Number: 2014SP000778

PATIENT
  Age: 77 Year
  Sex: Female

DRUGS (4)
  1. METHOTREXATE [Suspect]
     Indication: ANKYLOSING SPONDYLITIS
     Dates: start: 200710, end: 201402
  2. METHOTREXATE [Suspect]
     Indication: ANKYLOSING SPONDYLITIS
  3. ETANERCEPT [Suspect]
     Indication: ANKYLOSING SPONDYLITIS
     Route: 058
     Dates: start: 200710, end: 201402
  4. ETANERCEPT [Suspect]
     Indication: ANKYLOSING SPONDYLITIS

REACTIONS (4)
  - Cataract [Unknown]
  - Herpes zoster [Recovered/Resolved]
  - Eye infection [Unknown]
  - Anxiety [Unknown]
